FAERS Safety Report 16815971 (Version 1)
Quarter: 2019Q3

REPORT INFORMATION
  Report Type: Spontaneous
  Country: IT (occurrence: IT)
  Receive Date: 20190917
  Receipt Date: 20190917
  Transmission Date: 20191005
  Serious: Yes (Other)
  Sender: FDA-Public Use
  Company Number: IT-ACCORD-154891

PATIENT
  Age: 41 Year
  Sex: Female

DRUGS (2)
  1. AVASTIN [Suspect]
     Active Substance: BEVACIZUMAB
     Indication: BREAST NEOPLASM
     Route: 042
     Dates: start: 20180710, end: 20180710
  2. PACLITAXEL ACCORD [Suspect]
     Active Substance: PACLITAXEL
     Indication: BREAST NEOPLASM
     Dosage: STRENGTH: 6 MG/ML CONCENTRATED FOR SOLUTION
     Route: 042
     Dates: start: 20180516, end: 20180717

REACTIONS (2)
  - Electrocardiogram ST-T change [Recovered/Resolved]
  - Electrocardiogram change [Recovered/Resolved]

NARRATIVE: CASE EVENT DATE: 20180719
